FAERS Safety Report 7958400 (Version 10)
Quarter: 2024Q2

REPORT INFORMATION
  Report Type: Report from Study
  Country: DE (occurrence: DE)
  Receive Date: 20110524
  Receipt Date: 20240625
  Transmission Date: 20240716
  Serious: Yes (Hospitalization)
  Sender: FDA-Public Use
  Company Number: DE-JNJFOC-20110504673

PATIENT
  Age: 12 Year
  Sex: Female
  Weight: 35.5 kg

DRUGS (4)
  1. REMICADE [Suspect]
     Active Substance: INFLIXIMAB
     Indication: Crohn^s disease
     Route: 041
     Dates: start: 20090702, end: 20100318
  2. REMICADE [Suspect]
     Active Substance: INFLIXIMAB
     Route: 041
     Dates: start: 20100415, end: 20100517
  3. REMICADE [Suspect]
     Active Substance: INFLIXIMAB
     Route: 041
     Dates: start: 20100617, end: 20110825
  4. CEFUROXIME [Suspect]
     Active Substance: CEFUROXIME
     Indication: Product used for unknown indication

REACTIONS (14)
  - Lymphadenitis [Recovered/Resolved]
  - Eating disorder [Recovered/Resolved]
  - Rash [Recovered/Resolved]
  - Haematuria [Recovered/Resolved]
  - Herpes simplex [Recovered/Resolved]
  - Hypovolaemia [Recovered/Resolved]
  - Leukocyturia [Recovered/Resolved]
  - Bacterial disease carrier [Recovered/Resolved]
  - Aphthous ulcer [Recovered/Resolved]
  - Paronychia [Recovered/Resolved]
  - Pruritus [Recovered/Resolved]
  - Sinusitis [Recovered/Resolved]
  - Vomiting [Recovered/Resolved]
  - Zinc deficiency [Recovered/Resolved]

NARRATIVE: CASE EVENT DATE: 20101102
